FAERS Safety Report 17413603 (Version 6)
Quarter: 2020Q3

REPORT INFORMATION
  Report Type: Report from Study
  Country: CA (occurrence: CA)
  Receive Date: 20200213
  Receipt Date: 20200728
  Transmission Date: 20201102
  Serious: Yes (Other)
  Sender: FDA-Public Use
  Company Number: NVSC2019CA080916

PATIENT
  Age: 57 Year
  Sex: Female

DRUGS (6)
  1. COSENTYX [Suspect]
     Active Substance: SECUKINUMAB
     Indication: PSORIATIC ARTHROPATHY
     Dosage: 300 MG, QW (0, 1, 2, AND 3)
     Route: 058
     Dates: start: 20200706
  2. SULFASALAZINE. [Concomitant]
     Active Substance: SULFASALAZINE
     Indication: PRODUCT USED FOR UNKNOWN INDICATION
     Dosage: 1 DF, TID
     Route: 065
     Dates: start: 201902, end: 201904
  3. LEFLUNOMIDE. [Concomitant]
     Active Substance: LEFLUNOMIDE
     Indication: PRODUCT USED FOR UNKNOWN INDICATION
     Dosage: 1 DF, QD
     Route: 065
     Dates: start: 201904
  4. ERELZI [Suspect]
     Active Substance: ETANERCEPT-SZZS
     Indication: PSORIATIC ARTHROPATHY
     Dosage: 50 MG, QW
     Route: 058
     Dates: start: 20191112
  5. CELEBREX [Concomitant]
     Active Substance: CELECOXIB
     Indication: PRODUCT USED FOR UNKNOWN INDICATION
     Dosage: UNK, BID
     Route: 048
  6. ERELZI [Suspect]
     Active Substance: ETANERCEPT-SZZS
     Dosage: 50 MG, QW
     Route: 058
     Dates: start: 20200128, end: 20200304

REACTIONS (20)
  - Pain [Unknown]
  - Haemochromatosis [Unknown]
  - Infective tenosynovitis [Recovering/Resolving]
  - Rash pustular [Unknown]
  - Sensory loss [Unknown]
  - Diarrhoea [Unknown]
  - Infection [Unknown]
  - Drug ineffective [Unknown]
  - Enlarged clitoris [Unknown]
  - Hypersensitivity [Unknown]
  - Streptococcal infection [Unknown]
  - Erythema [Unknown]
  - Drug hypersensitivity [Unknown]
  - Anxiety [Unknown]
  - Dyshidrotic eczema [Not Recovered/Not Resolved]
  - Arthritis [Unknown]
  - Peripheral swelling [Unknown]
  - Psoriasis [Unknown]
  - Localised infection [Unknown]
  - Acne [Unknown]

NARRATIVE: CASE EVENT DATE: 202001
